FAERS Safety Report 8765318 (Version 5)
Quarter: 2012Q4

REPORT INFORMATION
  Report Type: 
  Country: US (occurrence: US)
  Receive Date: 20120831
  Receipt Date: 20121105
  Transmission Date: 20130627
  Serious: Yes (Hospitalization, Other)
  Sender: FDA-Public Use
  Company Number: US-009507513-1107USA01062

PATIENT

DRUGS (6)
  1. FOSAMAX [Suspect]
     Indication: OSTEOPENIA
     Dosage: 70 mg, UNK
     Route: 048
     Dates: start: 2001, end: 20061002
  2. FOSAMAX [Suspect]
     Indication: OSTEOPENIA
     Dosage: 70 mg,qw
     Route: 048
     Dates: start: 20080717, end: 200908
  3. FOSAMAX PLUS D [Suspect]
     Indication: OSTEOPENIA
     Dosage: 70 mg/5600 IU
     Route: 048
     Dates: start: 20061003, end: 20080715
  4. CALCIUM (UNSPECIFIED) [Concomitant]
  5. VITAMIN D (UNSPECIFIED) [Concomitant]
  6. ALENDRONATE SODIUM [Suspect]
     Dosage: 70 mg, UNK
     Dates: start: 20080717, end: 200909

REACTIONS (33)
  - Femur fracture [Unknown]
  - Open reduction of fracture [Unknown]
  - Fall [Unknown]
  - Mammoplasty [Unknown]
  - Osteonecrosis [Unknown]
  - Anaemia [Unknown]
  - Transfusion [Unknown]
  - Vitamin D deficiency [Unknown]
  - Muscle strain [Unknown]
  - Herpes zoster [Unknown]
  - Hypertension [Unknown]
  - Blood cholesterol increased [Unknown]
  - Depression [Unknown]
  - Sleep disorder [Unknown]
  - Infection [Unknown]
  - Eczema [Unknown]
  - Pain [Unknown]
  - Adverse event [Unknown]
  - Osteoporosis [Unknown]
  - Musculoskeletal pain [Unknown]
  - Chest pain [Unknown]
  - Benign neoplasm of thyroid gland [Unknown]
  - Back pain [Unknown]
  - Dyspnoea exertional [Unknown]
  - Bronchitis [Unknown]
  - Mammogram abnormal [Unknown]
  - Blepharoplasty [Unknown]
  - Left ventricular hypertrophy [Unknown]
  - Diverticulum [Unknown]
  - Non-cardiac chest pain [Unknown]
  - Ligament sprain [Unknown]
  - Arthralgia [Not Recovered/Not Resolved]
  - Arthralgia [Unknown]
